FAERS Safety Report 6129348-X (Version None)
Quarter: 2009Q1

REPORT INFORMATION
  Report Type: 
  Country: None (occurrence: None)
  Receive Date: 20090324
  Receipt Date: 20090318
  Transmission Date: 20090719
  Serious: Yes (Other)
  Sender: FDA-Public Use
  Company Number: CN-BAYER-200819547GPV

PATIENT
  Age: 33 Year
  Sex: Female
  Weight: 58 kg

DRUGS (1)
  1. CLOTRIMAZOLE [Suspect]
     Indication: VULVOVAGINAL MYCOTIC INFECTION
     Dosage: TOTAL DAILY DOSE: 500 MG  UNIT DOSE: 500 MG
     Route: 067
     Dates: start: 20080531, end: 20080531

REACTIONS (3)
  - ABORTION INDUCED [None]
  - INTRA-UTERINE DEATH [None]
  - VAGINAL HAEMORRHAGE [None]
